FAERS Safety Report 10577255 (Version 3)
Quarter: 2015Q3

REPORT INFORMATION
  Report Type: Spontaneous
  Country: US (occurrence: US)
  Receive Date: 20141111
  Receipt Date: 20150818
  Transmission Date: 20151125
  Serious: No
  Sender: FDA-Public Use
  Company Number: US-GILEAD-2014-0121653

PATIENT
  Age: 84 Year
  Sex: Female

DRUGS (2)
  1. COUMADIN [Concomitant]
     Active Substance: WARFARIN SODIUM
  2. LETAIRIS [Suspect]
     Active Substance: AMBRISENTAN
     Indication: PRODUCT USED FOR UNKNOWN INDICATION
     Dosage: 5 MG, UNK
     Route: 065

REACTIONS (9)
  - Oxygen saturation abnormal [Unknown]
  - Blood glucose decreased [Unknown]
  - Palpitations [Unknown]
  - Hypoglycaemia [Unknown]
  - Heart rate irregular [Unknown]
  - Oedema peripheral [Unknown]
  - Headache [Unknown]
  - Vision blurred [Unknown]
  - Visual impairment [Unknown]
